FAERS Safety Report 7759155-3 (Version None)
Quarter: 2011Q3

REPORT INFORMATION
  Report Type: 
  Country: None (occurrence: None)
  Receive Date: 20110919
  Receipt Date: 20110914
  Transmission Date: 20111222
  Serious: Yes (Other)
  Sender: FDA-Public Use
  Company Number: PHHY2011JP57302

PATIENT
  Age: 61 Year
  Sex: Female

DRUGS (2)
  1. FEMARA [Suspect]
     Indication: BREAST CANCER
     Dosage: ONCE DAILY
     Route: 048
     Dates: start: 20100201
  2. FEMARA [Suspect]
     Dosage: ONCE DAILY
     Route: 048

REACTIONS (4)
  - MUSCLE SPASMS [None]
  - CHEST DISCOMFORT [None]
  - MUSCULOSKELETAL PAIN [None]
  - BACK PAIN [None]
